FAERS Safety Report 11575872 (Version 3)
Quarter: 2015Q4

REPORT INFORMATION
  Report Type: Spontaneous
  Country: US (occurrence: US)
  Receive Date: 20150930
  Receipt Date: 20151028
  Transmission Date: 20160304
  Serious: Yes (Other)
  Sender: FDA-Public Use
  Company Number: US-PFIZER INC-2015322898

PATIENT
  Age: 58 Year
  Sex: Male

DRUGS (2)
  1. ADRENALINE [Suspect]
     Active Substance: EPINEPHRINE
     Indication: LOCAL ANAESTHESIA
     Dosage: 1:100000, UNK
  2. LIDOCAINE HCL [Suspect]
     Active Substance: LIDOCAINE HYDROCHLORIDE
     Indication: LOCAL ANAESTHESIA
     Dosage: 1.8 ML (2%), UNK

REACTIONS (4)
  - Ophthalmoplegia [Recovered/Resolved]
  - Amaurosis [Recovered/Resolved]
  - Dizziness [Recovered/Resolved]
  - Diplopia [Recovered/Resolved]
